FAERS Safety Report 9308270 (Version 2)
Quarter: 2013Q3

REPORT INFORMATION
  Report Type: Spontaneous
  Country: US (occurrence: US)
  Receive Date: 20130524
  Receipt Date: 20130712
  Transmission Date: 20140515
  Serious: Yes (Other)
  Sender: FDA-Public Use
  Company Number: PHEH2013US010947

PATIENT
  Sex: Male

DRUGS (20)
  1. AFINITOR [Suspect]
  2. PANCRELIPASE [Concomitant]
     Dosage: 5000 U, THRICE DAILY
  3. LEVOTHYROXINE [Concomitant]
  4. PANTOPRAZOL [Concomitant]
  5. PLAVIX [Concomitant]
  6. ASPIRIN [Concomitant]
  7. NIACIN [Concomitant]
  8. SIMVASTIN [Concomitant]
  9. GARLIC [Concomitant]
     Dosage: UNK
  10. FLUNISOLIDE [Concomitant]
  11. FLOMAX ^CSL^ [Concomitant]
  12. FOLIC ACID [Concomitant]
  13. B 12 [Concomitant]
     Dosage: UNK
  14. CALCIUM [Concomitant]
  15. CHOLECALCIFEROL [Concomitant]
  16. B6 [Concomitant]
  17. METOPROLOL [Concomitant]
  18. INSULIN [Concomitant]
  19. LISINOPRIL [Concomitant]
  20. CHLORTALIDONE [Concomitant]

REACTIONS (5)
  - Loss of consciousness [Unknown]
  - Hypotension [Unknown]
  - Drug interaction [Unknown]
  - Pruritus [Unknown]
  - Diarrhoea [Unknown]
